FAERS Safety Report 5766229-5 (Version None)
Quarter: 2008Q2

REPORT INFORMATION
  Report Type: 
  Country: None (occurrence: None)
  Receive Date: 20080606
  Receipt Date: 20080527
  Transmission Date: 20081010
  Serious: Yes (Life-Threatening, Hospitalization)
  Sender: FDA-Public Use
  Company Number: US022861

PATIENT
  Age: 41 Year
  Sex: Female
  Weight: 44.4525 kg

DRUGS (13)
  1. PROVIGIL [Suspect]
     Indication: NARCOLEPSY
     Dosage: 600 MG QD ORAL
     Route: 048
     Dates: start: 19970101, end: 20050506
  2. PROVIGIL [Suspect]
     Indication: NARCOLEPSY
     Dosage: 600 MG QD ORAL
     Route: 048
     Dates: start: 20050601, end: 20071211
  3. PROVIGIL [Suspect]
     Indication: NARCOLEPSY
     Dosage: 600 MG QD ORAL
     Route: 048
     Dates: start: 20050601, end: 20071211
  4. PROVIGIL [Suspect]
     Indication: NARCOLEPSY
     Dosage: 600 MG QD ORAL
     Route: 048
     Dates: start: 20080101
  5. DAYTRANA [Concomitant]
  6. CELEXA [Concomitant]
  7. SYNTHROID [Concomitant]
  8. ASPIRIN [Concomitant]
  9. RITALIN [Concomitant]
  10. OMEPRAZOLE [Concomitant]
  11. PLAVIX [Concomitant]
  12. DEPAKOTE [Concomitant]
  13. M.V.I. [Concomitant]

REACTIONS (4)
  - ANEURYSM RUPTURED [None]
  - CEREBRAL HAEMORRHAGE [None]
  - MEDICAL DEVICE COMPLICATION [None]
  - RETINAL ANEURYSM [None]
